FAERS Safety Report 10044972 (Version 1)
Quarter: 2014Q1

REPORT INFORMATION
  Report Type: Spontaneous
  Country: GB (occurrence: GB)
  Receive Date: 20140328
  Receipt Date: 20140328
  Transmission Date: 20141002
  Serious: Yes (Death, Other)
  Sender: FDA-Public Use
  Company Number: GB-OTSUKA-EU-2014-10077

PATIENT
  Age: 58 Year
  Sex: Female

DRUGS (2)
  1. SAMSCA [Suspect]
     Indication: PRODUCT USED FOR UNKNOWN INDICATION
     Dosage: 15 MG MILLIGRAM(S), SINGLE
     Route: 048
  2. DEMECLOCYCLINE [Concomitant]
     Dosage: UNK UNK, UNKNOWN
     Route: 065

REACTIONS (2)
  - Neutropenic sepsis [Fatal]
  - Rapid correction of hyponatraemia [Unknown]
